FAERS Safety Report 9807006 (Version 1)
Quarter: 2014Q1

REPORT INFORMATION
  Report Type: Report from Study
  Country: US (occurrence: US)
  Receive Date: 20140110
  Receipt Date: 20140110
  Transmission Date: 20141002
  Serious: Yes (Death)
  Sender: FDA-Public Use
  Company Number: US-ROCHE-1330763

PATIENT
  Age: 72 Year
  Sex: Female
  Weight: 55.9 kg

DRUGS (5)
  1. AVASTIN [Suspect]
     Indication: CERVIX CARCINOMA
     Dosage: DOSE: 838 MG
     Route: 041
  2. BENADRYL (UNITED STATES) [Concomitant]
  3. ZANTAC [Concomitant]
     Route: 042
  4. OXYGEN [Concomitant]
     Route: 065
  5. NORMAL SALINE [Concomitant]
     Route: 065

REACTIONS (2)
  - Death [Fatal]
  - Dyspnoea [Unknown]
